FAERS Safety Report 15321261 (Version 1)
Quarter: 2018Q3

REPORT INFORMATION
  Report Type: Spontaneous
  Country: US (occurrence: US)
  Receive Date: 20180821
  Receipt Date: 20180821
  Transmission Date: 20181010
  Serious: Yes (Other)
  Sender: FDA-Public Use
  Company Number: None

PATIENT
  Age: 43 Year
  Sex: Male
  Weight: 78.02 kg

DRUGS (3)
  1. SIMVASTATIN 10 MG [Suspect]
     Active Substance: SIMVASTATIN
     Route: 048
  2. RASUVASTATIN [Suspect]
     Active Substance: ROSUVASTATIN
     Route: 048
  3. LIPITOR [Suspect]
     Active Substance: ATORVASTATIN CALCIUM

REACTIONS (1)
  - Headache [None]
